FAERS Safety Report 6266759-6 (Version None)
Quarter: 2009Q3

REPORT INFORMATION
  Report Type: 
  Country: None (occurrence: None)
  Receive Date: 20090714
  Receipt Date: 20090709
  Transmission Date: 20100115
  Serious: Yes (Death, Other)
  Sender: FDA-Public Use
  Company Number: US-ASTRAZENECA-2009UW19373

PATIENT
  Age: 66 Year
  Sex: Male

DRUGS (1)
  1. SEROQUEL XR [Suspect]
     Indication: DEMENTIA
     Route: 048
     Dates: start: 20090501

REACTIONS (3)
  - ACUTE PULMONARY OEDEMA [None]
  - CAROTID ARTERY DISEASE [None]
  - SUDDEN DEATH [None]
